FAERS Safety Report 20717755 (Version 1)
Quarter: 2022Q2

REPORT INFORMATION
  Report Type: Spontaneous
  Country: CN (occurrence: CN)
  Receive Date: 20220417
  Receipt Date: 20220417
  Transmission Date: 20220720
  Serious: Yes (Hospitalization)
  Sender: FDA-Public Use
  Company Number: CN-BAXTER-2022BAX008262

PATIENT
  Age: 42 Year
  Sex: Female
  Weight: 60 kg

DRUGS (11)
  1. CYCLOPHOSPHAMIDE [Suspect]
     Active Substance: CYCLOPHOSPHAMIDE
     Indication: Neoplasm malignant
     Dosage: CYCLOPHOSPHAMIDE (1.2 G) DILUTED WITH NS (250 ML), D1
     Route: 041
     Dates: start: 20220326, end: 20220326
  2. SODIUM CHLORIDE [Suspect]
     Active Substance: SODIUM CHLORIDE
     Indication: Medication dilution
     Dosage: CYCLOPHOSPHAMIDE 1.2G DILUTED WITH NS 250ML, D1
     Route: 041
     Dates: start: 20220326, end: 20220326
  3. SODIUM CHLORIDE [Suspect]
     Active Substance: SODIUM CHLORIDE
     Dosage: EPIRUBICIN (80 MG) DILUTED WITH NS 10 ML D1
     Route: 041
     Dates: start: 20220326, end: 20220326
  4. SODIUM CHLORIDE [Suspect]
     Active Substance: SODIUM CHLORIDE
     Dosage: VINDESINE (4 MG) DILUTED WITH NS 20ML, D1
     Route: 041
     Dates: start: 20220326, end: 20220326
  5. SODIUM CHLORIDE [Suspect]
     Active Substance: SODIUM CHLORIDE
     Dosage: RITUXIMAB 100 MG DILUTED WITH NS 250ML
     Route: 041
     Dates: start: 20220326, end: 20220326
  6. SODIUM CHLORIDE [Suspect]
     Active Substance: SODIUM CHLORIDE
     Dosage: RITUXIMAB 500MG DILUTED WITH NS 500ML  D1
     Route: 041
     Dates: start: 20220326, end: 20220326
  7. EPIRUBICIN HYDROCHLORIDE [Suspect]
     Active Substance: EPIRUBICIN HYDROCHLORIDE
     Indication: Neoplasm malignant
     Dosage: EPIRUBICIN (80 MG) DILUTED WITH NS (10 ML) D1
     Route: 041
     Dates: start: 20220326, end: 20220326
  8. VINDESINE SULFATE [Suspect]
     Active Substance: VINDESINE SULFATE
     Indication: Neoplasm malignant
     Dosage: VINDESINE (4 MG) DILUTED WITH NS (20 ML)  D1
     Route: 041
     Dates: start: 20220326, end: 20220326
  9. RITUXIMAB [Suspect]
     Active Substance: RITUXIMAB
     Indication: Neoplasm malignant
     Dosage: RITUXIMAB 100MG + NS 250ML
     Route: 041
     Dates: start: 20220326, end: 20220326
  10. RITUXIMAB [Suspect]
     Active Substance: RITUXIMAB
     Dosage: RITUXIMAB (500 MG) + NS 500 ML D1
     Route: 041
     Dates: start: 20220326, end: 20220326
  11. PREDNISONE ACETATE [Suspect]
     Active Substance: PREDNISONE ACETATE
     Indication: Neoplasm malignant
     Dosage: D1-5
     Route: 048
     Dates: start: 20220326

REACTIONS (5)
  - Abdominal distension [Recovering/Resolving]
  - Nausea [Recovering/Resolving]
  - Vomiting [Recovering/Resolving]
  - Dizziness [Recovering/Resolving]
  - Headache [Recovering/Resolving]

NARRATIVE: CASE EVENT DATE: 20220327
